FAERS Safety Report 5670094-4 (Version None)
Quarter: 2008Q1

REPORT INFORMATION
  Report Type: 
  Country: None (occurrence: None)
  Receive Date: 20080312
  Receipt Date: 20080227
  Transmission Date: 20080703
  Serious: No
  Sender: FDA-Public Use
  Company Number: OMPQ-NO-0802S-0118

PATIENT
  Age: 69 Year
  Sex: Male

DRUGS (9)
  1. OMNIPAQUE 300 [Suspect]
     Indication: ARTERIOSCLEROSIS CORONARY ARTERY
     Dosage: 80 ML, SINGLE DOSE, I.A.
     Dates: start: 20080121, end: 20080121
  2. ISOSORBIDE MONONITRATE (ITOROL) [Concomitant]
  3. TICLOFIDINE HYDROCHLORIDE (PANALDINE) [Concomitant]
  4. NICORANDIL (SIGMART) [Concomitant]
  5. FAMOTIDINE (GASTER D) [Concomitant]
  6. ACETYLSALICYLIC ACID (BAYASPIRIN) [Concomitant]
  7. CALCIUM CARBONATE (TANKARU) [Concomitant]
  8. OLMESARTAN (OLMETEC) [Concomitant]
  9. BENIDIPINE HYDROCHLORIDE (CONIEL) [Concomitant]

REACTIONS (1)
  - VIRAL SKIN INFECTION [None]
